FAERS Safety Report 10880410 (Version 2)
Quarter: 2015Q3

REPORT INFORMATION
  Report Type: Report from Study
  Country: US (occurrence: US)
  Receive Date: 20150303
  Receipt Date: 20150818
  Transmission Date: 20151125
  Serious: Yes (Hospitalization)
  Sender: FDA-Public Use
  Company Number: US-GILEAD-2015-0139705

PATIENT
  Age: 73 Year
  Sex: Male

DRUGS (15)
  1. ADCIRCA [Concomitant]
     Active Substance: TADALAFIL
  2. GLIPIZIDE. [Concomitant]
     Active Substance: GLIPIZIDE
  3. LYRICA [Concomitant]
     Active Substance: PREGABALIN
  4. PLAVIX [Concomitant]
     Active Substance: CLOPIDOGREL BISULFATE
  5. METOLAZONE. [Concomitant]
     Active Substance: METOLAZONE
  6. LASIX [Concomitant]
     Active Substance: FUROSEMIDE
  7. LISINOPRIL. [Concomitant]
     Active Substance: LISINOPRIL
  8. ZOCOR [Concomitant]
     Active Substance: SIMVASTATIN
  9. CARVEDILOL. [Concomitant]
     Active Substance: CARVEDILOL
  10. PRILOSEC [Concomitant]
     Active Substance: OMEPRAZOLE MAGNESIUM
  11. AMBRISENTAN [Suspect]
     Active Substance: AMBRISENTAN
     Indication: PULMONARY ARTERIAL HYPERTENSION
     Dosage: 10 MG, QD
     Route: 065
     Dates: start: 20140305
  12. ASPIRIN                            /00002701/ [Concomitant]
     Active Substance: ASPIRIN
  13. POTASSIUM [Concomitant]
     Active Substance: POTASSIUM
  14. PRIMIDONE. [Concomitant]
     Active Substance: PRIMIDONE
  15. ALDACTONE [Concomitant]
     Active Substance: SPIRONOLACTONE

REACTIONS (2)
  - Dyspnoea [Not Recovered/Not Resolved]
  - Staphylococcal infection [Unknown]

NARRATIVE: CASE EVENT DATE: 20150212
